FAERS Safety Report 7075134-6 (Version None)
Quarter: 2010Q4

REPORT INFORMATION
  Report Type: 
  Country: None (occurrence: None)
  Receive Date: 20101029
  Receipt Date: 20100406
  Transmission Date: 20110411
  Serious: No
  Sender: FDA-Public Use
  Company Number: US-WYE-H13940110

PATIENT
  Age: 42 Year
  Sex: Female
  Weight: 106.69 kg

DRUGS (2)
  1. ALAVERT D-12 [Suspect]
     Indication: SINUSITIS
     Route: 048
     Dates: start: 20100223, end: 20100223
  2. CENTRUM [Concomitant]

REACTIONS (1)
  - DRUG EFFECT DECREASED [None]
